FAERS Safety Report 7719410-X (Version None)
Quarter: 2011Q3

REPORT INFORMATION
  Report Type: 
  Country: None (occurrence: None)
  Receive Date: 20110830
  Receipt Date: 20110825
  Transmission Date: 20111222
  Serious: Yes (Hospitalization)
  Sender: FDA-Public Use
  Company Number: PHHO2010US01821

PATIENT
  Sex: Male
  Weight: 117.3 kg

DRUGS (21)
  1. DEXAMETHASONE [Concomitant]
  2. DOCUSATE SODIUM W/SENNA [Concomitant]
  3. FALICARD - SLOW RELEASE [Concomitant]
  4. FENTANYL [Concomitant]
  5. ZOCOR [Concomitant]
  6. EFFEXOR XR [Concomitant]
  7. MULTI-VITAMINS [Concomitant]
  8. MAALOX [Concomitant]
  9. POTASSIUM CITRATE [Concomitant]
  10. ATIVAN [Concomitant]
  11. AFINITOR [Suspect]
     Indication: SARCOMA
     Dosage: 10 MG, EVERY DAY
     Route: 048
     Dates: start: 20090105, end: 20100323
  12. CALCIUM CARBONATE [Concomitant]
  13. CLOBETASOL PROPIONATE [Concomitant]
  14. DIPHENHYDRAMINE, COMBINATIONS [Concomitant]
  15. NEURONTIN [Concomitant]
  16. NEXIUM [Concomitant]
  17. ALLOPURINOL [Concomitant]
  18. COLCHICINE [Concomitant]
  19. METOPROLOL TARTRATE [Concomitant]
  20. FOLGARD [Concomitant]
  21. ASPIRIN [Concomitant]

REACTIONS (12)
  - RECTAL HAEMORRHAGE [None]
  - FAECES DISCOLOURED [None]
  - METASTASES TO STOMACH [None]
  - GASTROINTESTINAL HAEMORRHAGE [None]
  - ABDOMINAL PAIN [None]
  - LUMBAR RADICULOPATHY [None]
  - DYSPNOEA [None]
  - NEOPLASM MALIGNANT [None]
  - METASTASES TO SPINE [None]
  - ODYNOPHAGIA [None]
  - HAEMATOCRIT DECREASED [None]
  - GASTROINTESTINAL NECROSIS [None]
